FAERS Safety Report 6394145-7 (Version None)
Quarter: 2009Q4

REPORT INFORMATION
  Report Type: 
  Country: None (occurrence: None)
  Receive Date: 20091008
  Receipt Date: 20090904
  Transmission Date: 20100525
  Serious: No
  Sender: FDA-Public Use
  Company Number: US-BAYER-200932980NA

PATIENT
  Age: 49 Year
  Sex: Female

DRUGS (7)
  1. MAGNEVIST [Suspect]
     Indication: DYSURIA
     Dosage: TOTAL DAILY DOSE: 23 ML  UNIT DOSE: 50 ML
     Route: 042
     Dates: start: 20090903, end: 20090903
  2. SYNTHROID [Concomitant]
  3. SINGULAIR [Concomitant]
  4. ZYRTEC [Concomitant]
  5. LUNESTA [Concomitant]
  6. LIPITOR [Concomitant]
  7. EFFEXOR [Concomitant]

REACTIONS (1)
  - PRURITUS [None]
